FAERS Safety Report 19991518 (Version 1)
Quarter: 2021Q4

REPORT INFORMATION
  Report Type: Spontaneous
  Country: US (occurrence: US)
  Receive Date: 20211025
  Receipt Date: 20211025
  Transmission Date: 20220303
  Serious: Yes (Life-Threatening, Other)
  Sender: FDA-Public Use
  Company Number: US-BAYER-2021A233862

PATIENT
  Age: 68 Year
  Sex: Female

DRUGS (1)
  1. ALKA-SELTZER PLUS FLU FORMULA [Suspect]
     Active Substance: ACETAMINOPHEN\CHLORPHENIRAMINE\DEXTROMETHORPHAN\PHENYLEPHRINE
     Indication: Nasopharyngitis
     Dosage: 325 MG
     Dates: start: 20211019, end: 20211019

REACTIONS (2)
  - Choking [Recovered/Resolved]
  - Foreign body in throat [None]

NARRATIVE: CASE EVENT DATE: 20211019
